FAERS Safety Report 18422316 (Version 2)
Quarter: 2020Q4

REPORT INFORMATION
  Report Type: Spontaneous
  Country: US (occurrence: US)
  Receive Date: 20201023
  Receipt Date: 20201027
  Transmission Date: 20210114
  Serious: No
  Sender: FDA-Public Use
  Company Number: US-PFIZER INC-2020408868

PATIENT
  Age: 87 Year
  Sex: Female
  Weight: 46.72 kg

DRUGS (3)
  1. FULVESTRANT. [Concomitant]
     Active Substance: FULVESTRANT
     Indication: BREAST CANCER METASTATIC
     Dosage: UNK (GETS AN INJECTION IN HER BUTT/STARTED AT EVERY 2 WEEKS)
     Dates: start: 202009
  2. FULVESTRANT. [Concomitant]
     Active Substance: FULVESTRANT
     Dosage: UNK (NOW GETS A MONTHLY INJECTION AT THE DOCTOR^S OFFICE)
  3. IBRANCE [Suspect]
     Active Substance: PALBOCICLIB
     Indication: BREAST CANCER METASTATIC
     Dosage: 100 MG, CYCLIC (100 MG DAILY BY MOUTH FOR 3 WEEKS AND THEN 1 WEEK OFF)
     Route: 048
     Dates: start: 202010

REACTIONS (2)
  - Pruritus [Not Recovered/Not Resolved]
  - Chronic obstructive pulmonary disease [Unknown]

NARRATIVE: CASE EVENT DATE: 202010
